FAERS Safety Report 4882045-0 (Version None)
Quarter: 2006Q1

REPORT INFORMATION
  Report Type: 
  Country: None (occurrence: None)
  Receive Date: 20060113
  Receipt Date: 20060113
  Transmission Date: 20060701
  Serious: Yes (Hospitalization)
  Sender: FDA-Public Use
  Company Number: None

PATIENT
  Sex: Male
  Weight: 70 kg

DRUGS (6)
  1. RAPAMYCIN [Suspect]
     Dosage: 5 MG PO DAILY 28 DAYS
     Route: 048
     Dates: start: 20051214
  2. ASPIRIN [Concomitant]
  3. KITRO [Concomitant]
  4. DEMEROL [Concomitant]
  5. CEFRIAXONE [Concomitant]
  6. AZITHROMYCIN [Concomitant]

REACTIONS (9)
  - ASTHENIA [None]
  - COUGH [None]
  - DEHYDRATION [None]
  - DYSPNOEA [None]
  - HYPOTENSION [None]
  - PYREXIA [None]
  - TROPONIN INCREASED [None]
  - VOMITING [None]
  - WHEEZING [None]
